FAERS Safety Report 20143535 (Version 4)
Quarter: 2022Q1

REPORT INFORMATION
  Report Type: Spontaneous
  Country: PL (occurrence: PL)
  Receive Date: 20211203
  Receipt Date: 20220201
  Transmission Date: 20220423
  Serious: Yes (Other)
  Sender: FDA-Public Use
  Company Number: PL-SUN PHARMACEUTICAL INDUSTRIES LTD-2021RR-319192

PATIENT
  Age: 31 Year
  Sex: Male

DRUGS (11)
  1. ESCITALOPRAM [Interacting]
     Active Substance: ESCITALOPRAM OXALATE
     Indication: Depression
     Dosage: 10 MILLIGRAM, UNK
     Route: 065
  2. CLARITHROMYCIN [Suspect]
     Active Substance: CLARITHROMYCIN
     Indication: Cough
     Dosage: 500 MILLIGRAM, BID
     Route: 048
  3. AMOXICILLIN\CLAVULANIC ACID [Suspect]
     Active Substance: AMOXICILLIN\CLAVULANIC ACID
     Indication: Product used for unknown indication
     Dosage: 1000 MILLIGRAM, BID
     Route: 065
  4. PERINDOPRIL [Suspect]
     Active Substance: PERINDOPRIL
     Indication: Product used for unknown indication
     Dosage: 10 MILLIGRAM, UNK
     Route: 065
  5. AMLODIPINE [Suspect]
     Active Substance: AMLODIPINE BESYLATE
     Indication: Product used for unknown indication
     Dosage: 10 MILLIGRAM, UNK
     Route: 065
  6. METHYLPREDNISOLONE [Suspect]
     Active Substance: METHYLPREDNISOLONE
     Indication: Product used for unknown indication
     Dosage: 2 X 8 MG, UNK
     Route: 065
  7. OMEPRAZOLE [Interacting]
     Active Substance: OMEPRAZOLE
     Indication: Product used for unknown indication
     Dosage: 20 MILLIGRAM, BID
     Route: 065
  8. DEXTROMETHORPHAN [Suspect]
     Active Substance: DEXTROMETHORPHAN
     Indication: Cough
     Dosage: 30 MILLIGRAM, TID
     Route: 065
  9. CODEINE PHOSPHATE\SULFOGAIACOL [Suspect]
     Active Substance: CODEINE PHOSPHATE\SULFOGAIACOL
     Indication: Product used for unknown indication
     Dosage: 3 X 1 TABLET
     Route: 065
  10. VALSARTAN [Concomitant]
     Active Substance: VALSARTAN
     Indication: Product used for unknown indication
  11. VORTIOXETINE [Concomitant]
     Active Substance: VORTIOXETINE
     Indication: Depression

REACTIONS (8)
  - Cough [Recovering/Resolving]
  - Hyperhidrosis [Unknown]
  - Joint swelling [Unknown]
  - Sleep disorder [Unknown]
  - Irritability [Unknown]
  - Drug interaction [Recovering/Resolving]
  - Condition aggravated [Unknown]
  - Serotonin syndrome [Recovering/Resolving]
